FAERS Safety Report 17095242 (Version 2)
Quarter: 2019Q4

REPORT INFORMATION
  Report Type: Spontaneous
  Country: CN (occurrence: CN)
  Receive Date: 20191130
  Receipt Date: 20191202
  Transmission Date: 20200122
  Serious: Yes (Hospitalization)
  Sender: FDA-Public Use
  Company Number: CN-JNJFOC-20191132434

PATIENT

DRUGS (4)
  1. IBUPROFEN. [Suspect]
     Active Substance: IBUPROFEN
     Indication: PRODUCT USED FOR UNKNOWN INDICATION
     Route: 048
  2. TYLENOL COLD AND COUGH CAPLET (ACETAMINOPHEN\CHLORPHENIRAMINE\DEXTROMETHORPHAN\PSEUDOEPHEDRINE) [Suspect]
     Active Substance: ACETAMINOPHEN\CHLORPHENIRAMINE\DEXTROMETHORPHAN\PSEUDOEPHEDRINE
     Indication: PRODUCT USED FOR UNKNOWN INDICATION
     Route: 048
  3. ASPRIN [Suspect]
     Active Substance: ASPIRIN
     Indication: PRODUCT USED FOR UNKNOWN INDICATION
     Route: 048
  4. PARACETAMOL [Suspect]
     Active Substance: ACETAMINOPHEN
     Indication: PRODUCT USED FOR UNKNOWN INDICATION
     Route: 048

REACTIONS (17)
  - Chest discomfort [Recovered/Resolved]
  - Product administration error [Recovered/Resolved]
  - Blood urine present [Recovered/Resolved]
  - Blood lactate dehydrogenase increased [Recovered/Resolved]
  - Swelling face [Recovered/Resolved]
  - Blood alkaline phosphatase increased [Recovered/Resolved]
  - Platelet count decreased [Recovered/Resolved]
  - Rash maculo-papular [Recovered/Resolved]
  - Epidermolysis bullosa [Recovered/Resolved]
  - Aspartate aminotransferase increased [Recovered/Resolved]
  - Erythema multiforme [Recovered/Resolved]
  - Pyrexia [Recovered/Resolved]
  - Oral disorder [Recovered/Resolved]
  - Gamma-glutamyltransferase increased [Recovered/Resolved]
  - Protein urine present [Recovered/Resolved]
  - Mucosal disorder [Recovered/Resolved]
  - Alanine aminotransferase increased [Recovered/Resolved]
